FAERS Safety Report 11699594 (Version 2)
Quarter: 2015Q4

REPORT INFORMATION
  Report Type: Report from Study
  Country: NL (occurrence: NL)
  Receive Date: 20151105
  Receipt Date: 20151111
  Transmission Date: 20160304
  Serious: Yes (Death, Hospitalization, Other)
  Sender: FDA-Public Use
  Company Number: NL-AMGEN-NLDSL2015115136

PATIENT
  Age: 77 Year
  Sex: Female

DRUGS (2)
  1. ARANESP [Suspect]
     Active Substance: DARBEPOETIN ALFA
     Dosage: UNK
     Route: 058
  2. ARANESP [Suspect]
     Active Substance: DARBEPOETIN ALFA
     Indication: ANAEMIA
     Dosage: 500 MCG/ML, 1 ML, Q4WK
     Route: 058

REACTIONS (4)
  - Spinal disorder [Unknown]
  - Nephrolithiasis [Unknown]
  - Metastases to spine [Fatal]
  - Back pain [Recovering/Resolving]

NARRATIVE: CASE EVENT DATE: 20151014
